FAERS Safety Report 6899237-1 (Version None)
Quarter: 2010Q3

REPORT INFORMATION
  Report Type: 
  Country: None (occurrence: None)
  Receive Date: 20100802
  Receipt Date: 20080401
  Transmission Date: 20110219
  Serious: Yes (Life-Threatening, Other)
  Sender: FDA-Public Use
  Company Number: US-PFIZER INC-2008004554

PATIENT
  Age: 50 Year
  Sex: Female
  Weight: 136.1 kg

DRUGS (5)
  1. LYRICA [Suspect]
     Indication: FIBROMYALGIA
     Dates: start: 20080101
  2. NORCO [Concomitant]
  3. VALIUM [Concomitant]
  4. ZESTRIL [Concomitant]
  5. HYDROCHLOROTHIAZIDE [Concomitant]

REACTIONS (2)
  - ANGIOEDEMA [None]
  - PHARYNGEAL OEDEMA [None]
